FAERS Safety Report 20834413 (Version 1)
Quarter: 2022Q2

REPORT INFORMATION
  Report Type: Spontaneous
  Country: US (occurrence: US)
  Receive Date: 20220516
  Receipt Date: 20220516
  Transmission Date: 20220720
  Serious: No
  Sender: FDA-Public Use
  Company Number: US-PFIZER INC-202200709786

PATIENT
  Age: 74 Year
  Sex: Female

DRUGS (1)
  1. XELJANZ [Suspect]
     Active Substance: TOFACITINIB CITRATE
     Dosage: UNK

REACTIONS (7)
  - Fatigue [Unknown]
  - Musculoskeletal stiffness [Unknown]
  - Cough [Unknown]
  - Joint swelling [Unknown]
  - Herpes zoster [Unknown]
  - Pain [Unknown]
  - Condition aggravated [Unknown]
